FAERS Safety Report 5845473-2 (Version None)
Quarter: 2008Q3

REPORT INFORMATION
  Report Type: 
  Country: None (occurrence: None)
  Receive Date: 20080814
  Receipt Date: 20080805
  Transmission Date: 20090109
  Serious: Yes (Hospitalization, Other)
  Sender: FDA-Public Use
  Company Number: DE-GILEAD-2008-0016175

PATIENT
  Sex: Male
  Weight: 52 kg

DRUGS (3)
  1. TRUVADA [Suspect]
     Indication: HIV INFECTION
     Route: 048
     Dates: start: 20050830, end: 20080122
  2. INVIRASE [Concomitant]
     Indication: HIV INFECTION
     Route: 048
     Dates: start: 20050801, end: 20080122
  3. NORVIR [Concomitant]
     Indication: HIV INFECTION
     Dates: start: 20050801, end: 20080122

REACTIONS (1)
  - RENAL FAILURE ACUTE [None]
